FAERS Safety Report 8278657-7 (Version None)
Quarter: 2012Q2

REPORT INFORMATION
  Report Type: 
  Country: None (occurrence: None)
  Receive Date: 20120412
  Receipt Date: 20120221
  Transmission Date: 20120825
  Serious: No
  Sender: FDA-Public Use
  Company Number: US-ASTRAZENECA-2012SE11897

PATIENT
  Age: 5 Year
  Sex: Male

DRUGS (1)
  1. NEXIUM [Suspect]
     Indication: EOSINOPHILIC OESOPHAGITIS
     Route: 048

REACTIONS (3)
  - OFF LABEL USE [None]
  - VOMITING [None]
  - WRONG TECHNIQUE IN DRUG USAGE PROCESS [None]
